FAERS Safety Report 24895636 (Version 3)
Quarter: 2025Q2

REPORT INFORMATION
  Report Type: Spontaneous
  Country: US (occurrence: US)
  Receive Date: 20250128
  Receipt Date: 20250430
  Transmission Date: 20250717
  Serious: No
  Sender: BLUEPRINT MEDICINES
  Company Number: US-Blueprint Medicines Corporation-2025-AER-00133

PATIENT
  Age: 39 Year
  Sex: Female

DRUGS (2)
  1. AYVAKIT [Suspect]
     Active Substance: AVAPRITINIB
     Indication: Haematopoietic neoplasm
     Route: 065
  2. AYVAKIT [Suspect]
     Active Substance: AVAPRITINIB
     Route: 065

REACTIONS (19)
  - Dry skin [Unknown]
  - Alopecia [Unknown]
  - Amnesia [Unknown]
  - Aphasia [Unknown]
  - Fatigue [Unknown]
  - Hypoglobulinaemia [Unknown]
  - Anion gap decreased [Unknown]
  - Protein total decreased [Unknown]
  - Nightmare [Unknown]
  - Abnormal dreams [Unknown]
  - Pollakiuria [Unknown]
  - Photosensitivity reaction [Unknown]
  - Lacrimation increased [Unknown]
  - Memory impairment [Unknown]
  - Skin fissures [Unknown]
  - Mean platelet volume decreased [Unknown]
  - Anger [Unknown]
  - Arthralgia [Unknown]
  - Osteolysis [Unknown]

NARRATIVE: CASE EVENT DATE: 20250101
